FAERS Safety Report 4665724-X (Version None)
Quarter: 2005Q2

REPORT INFORMATION
  Report Type: 
  Country: None (occurrence: None)
  Receive Date: 20050519
  Receipt Date: 20050427
  Transmission Date: 20051028
  Serious: Yes (Hospitalization)
  Sender: FDA-Public Use
  Company Number: EE-BOEHRINGER INGELHEIM PHARMACEUTICALS, INC.-2005-UK-00720UK

PATIENT
  Sex: Male

DRUGS (3)
  1. TIOTROPIUM (00015/0190/A) [Suspect]
     Indication: CHRONIC OBSTRUCTIVE PULMONARY DISEASE
     Route: 055
     Dates: start: 20031205
  2. SALMETEROL XINATOATE [Concomitant]
     Dosage: 50 MCG TWICE DAILY
     Route: 055
     Dates: start: 20031121, end: 20031204
  3. PREDNISOLONE [Concomitant]
     Route: 048
     Dates: start: 20031121, end: 20031204

REACTIONS (2)
  - CARDIAC FAILURE [None]
  - CHRONIC OBSTRUCTIVE AIRWAYS DISEASE EXACERBATED [None]
